FAERS Safety Report 19391710 (Version 1)
Quarter: 2021Q2

REPORT INFORMATION
  Report Type: Spontaneous
  Country: CZ (occurrence: CZ)
  Receive Date: 20210608
  Receipt Date: 20210608
  Transmission Date: 20210717
  Serious: Yes (Life-Threatening, Hospitalization, Other)
  Sender: FDA-Public Use
  Company Number: CZ-ELI_LILLY_AND_COMPANY-CZ202106002226

PATIENT
  Age: 62 Year
  Sex: Male
  Weight: 125 kg

DRUGS (6)
  1. NEBILET [Concomitant]
     Active Substance: NEBIVOLOL
  2. PERINPA [Concomitant]
  3. MOXOSTAD [Concomitant]
     Active Substance: MOXONIDINE
  4. BAMLANIVIMAB 700MG [Suspect]
     Active Substance: BAMLANIVIMAB
     Indication: COVID-19
     Dosage: 700 MG, SINGLE
     Route: 042
     Dates: start: 20210517, end: 20210517
  5. EUPHYLLIN [THEOPHYLLINE] [Concomitant]
     Active Substance: THEOPHYLLINE
  6. PRENEWEL [Concomitant]
     Active Substance: INDAPAMIDE\PERINDOPRIL ERBUMINE

REACTIONS (6)
  - Gait disturbance [Unknown]
  - Tachycardia [Unknown]
  - Confusional state [Recovering/Resolving]
  - Hypoxia [Recovering/Resolving]
  - Amnesia [Unknown]
  - Fall [Recovered/Resolved]

NARRATIVE: CASE EVENT DATE: 20210517
